FAERS Safety Report 5327544-2 (Version None)
Quarter: 2007Q2

REPORT INFORMATION
  Report Type: 
  Country: None (occurrence: None)
  Receive Date: 20070517
  Receipt Date: 20070131
  Transmission Date: 20071010
  Serious: Yes (Hospitalization)
  Sender: FDA-Public Use
  Company Number: US-JNJFOC-20070103705

PATIENT
  Age: 62 Year
  Sex: Female

DRUGS (2)
  1. TRAMADOL HCL [Suspect]
     Indication: DRUG USE FOR UNKNOWN INDICATION
     Route: 048
  2. OTHER ANTIDEPRESSANT [Suspect]
     Indication: DRUG USE FOR UNKNOWN INDICATION
     Route: 048

REACTIONS (8)
  - BRADYCARDIA [None]
  - CONFUSIONAL STATE [None]
  - DELIRIUM [None]
  - HYPERTENSION [None]
  - HYPERTONIA [None]
  - INTENSIVE CARE [None]
  - MYDRIASIS [None]
  - SEROTONIN SYNDROME [None]
